FAERS Safety Report 9652444 (Version 2)
Quarter: 2014Q3

REPORT INFORMATION
  Report Type: Spontaneous
  Country: AU (occurrence: AU)
  Receive Date: 20131029
  Receipt Date: 20140911
  Transmission Date: 20150326
  Serious: Yes (Life-Threatening, Other)
  Sender: FDA-Public Use
  Company Number: AU-B.I. PHARMACEUTICALS,INC./RIDGEFIELD-2013-BI-34035GD

PATIENT
  Age: 72 Year
  Sex: Male

DRUGS (1)
  1. PRADAXA [Suspect]
     Active Substance: DABIGATRAN ETEXILATE MESYLATE
     Indication: ATRIAL FIBRILLATION
     Dosage: 300 MG
     Route: 065

REACTIONS (7)
  - Hydrocephalus [Unknown]
  - Neurological decompensation [Unknown]
  - Subdural haemorrhage [Unknown]
  - Intracranial pressure increased [Unknown]
  - Haemorrhage intracranial [Unknown]
  - Intracranial haematoma [Unknown]
  - Brain midline shift [Unknown]
